FAERS Safety Report 12262794 (Version 4)
Quarter: 2016Q2

REPORT INFORMATION
  Report Type: Spontaneous
  Country: US (occurrence: US)
  Receive Date: 20160413
  Receipt Date: 20160615
  Transmission Date: 20160815
  Serious: Yes (Life-Threatening, Other)
  Sender: FDA-Public Use
  Company Number: US-BAYER-2016-069852

PATIENT
  Age: 62 Year
  Sex: Female

DRUGS (3)
  1. ULTRAVIST [Suspect]
     Active Substance: IOPROMIDE
     Indication: COMPUTERISED TOMOGRAM THORAX
     Dosage: 1.0 ML, ONCE
     Route: 042
     Dates: start: 20160411, end: 20160411
  2. ULTRAVIST [Suspect]
     Active Substance: IOPROMIDE
     Indication: PULMONARY MASS
  3. ULTRAVIST [Suspect]
     Active Substance: IOPROMIDE
     Indication: COUGH

REACTIONS (14)
  - Erythema [None]
  - Lip swelling [None]
  - Unresponsive to stimuli [None]
  - Urticaria [Unknown]
  - Swelling face [None]
  - Pruritus generalised [None]
  - Sneezing [None]
  - Hyperhidrosis [None]
  - Dyspnoea [Unknown]
  - Lip pruritus [None]
  - Cough [None]
  - Throat tightness [None]
  - Dysphagia [None]
  - Pruritus [Unknown]

NARRATIVE: CASE EVENT DATE: 20160411
